FAERS Safety Report 5929362-0 (Version None)
Quarter: 2008Q4

REPORT INFORMATION
  Report Type: 
  Country: None (occurrence: None)
  Receive Date: 20081023
  Receipt Date: 20081023
  Transmission Date: 20090506
  Serious: Yes (Other)
  Sender: FDA-Public Use
  Company Number: None

PATIENT

DRUGS (1)
  1. EXCEDRIN (MIGRAINE) [Suspect]
     Dates: start: 20081002

REACTIONS (5)
  - ABASIA [None]
  - CHEST DISCOMFORT [None]
  - DISORIENTATION [None]
  - PAIN [None]
  - THROAT TIGHTNESS [None]
